FAERS Safety Report 24697015 (Version 1)
Quarter: 2024Q4

REPORT INFORMATION
  Report Type: Spontaneous
  Country: CN (occurrence: CN)
  Receive Date: 20241204
  Receipt Date: 20241204
  Transmission Date: 20250115
  Serious: Yes (Other)
  Sender: ELI LILLY AND COMPANY
  Company Number: CN-Merck Healthcare KGaA-2024063116

PATIENT
  Age: 56 Year
  Sex: Male
  Weight: 71 kg

DRUGS (3)
  1. ERBITUX [Suspect]
     Active Substance: CETUXIMAB
     Indication: Hypopharyngeal cancer
     Dosage: 300 MG, UNKNOWN
     Route: 041
     Dates: start: 20241108, end: 20241108
  2. DOCETAXEL [Suspect]
     Active Substance: DOCETAXEL
     Indication: Hypopharyngeal cancer
     Dosage: 120 MG, DAILY
     Route: 041
     Dates: start: 20241108, end: 20241108
  3. CAPECITABINE [Suspect]
     Active Substance: CAPECITABINE
     Indication: Hypopharyngeal cancer
     Dosage: 1.5 G, DAILY
     Route: 048
     Dates: start: 20241108, end: 20241108

REACTIONS (1)
  - White blood cell count decreased [Unknown]

NARRATIVE: CASE EVENT DATE: 20241114
